FAERS Safety Report 5390190-9 (Version None)
Quarter: 2007Q3

REPORT INFORMATION
  Report Type: 
  Country: None (occurrence: None)
  Receive Date: 20070718
  Receipt Date: 20070706
  Transmission Date: 20080115
  Serious: Yes (Other)
  Sender: FDA-Public Use
  Company Number: SE-AMGEN-US140392

PATIENT
  Sex: Female

DRUGS (2)
  1. ENBREL [Suspect]
     Indication: RHEUMATOID ARTHRITIS
     Dosage: UNKNOWN
     Dates: start: 19990621
  2. ENBREL [Suspect]
     Dosage: UNKNOWN

REACTIONS (2)
  - CEREBRAL HAEMORRHAGE [None]
  - SKIN REACTION [None]
